FAERS Safety Report 4820842-8 (Version None)
Quarter: 2005Q4

REPORT INFORMATION
  Report Type: 
  Country: None (occurrence: None)
  Receive Date: 20051104
  Receipt Date: 20051021
  Transmission Date: 20060501
  Serious: Yes (Hospitalization)
  Sender: FDA-Public Use
  Company Number: JP-AVENTIS-200519292GDDC

PATIENT
  Age: 69 Year
  Sex: Male

DRUGS (6)
  1. RIFADIN [Suspect]
     Indication: PULMONARY TUBERCULOSIS
     Dates: start: 20010601, end: 20010701
  2. ISCOTIN [Suspect]
     Indication: PULMONARY TUBERCULOSIS
     Route: 048
     Dates: start: 20010801
  3. ISCOTIN [Suspect]
     Route: 048
     Dates: start: 20010601, end: 20010701
  4. ISCOTIN [Suspect]
     Route: 048
     Dates: start: 20040401, end: 20050101
  5. STREPTOMYCIN [Suspect]
     Indication: PULMONARY TUBERCULOSIS
     Dates: start: 20010601, end: 20010701
  6. ETHAMBUTOL [Concomitant]
     Route: 048

REACTIONS (3)
  - PANCYTOPENIA [None]
  - RASH [None]
  - RENAL TUBULAR DISORDER [None]
